FAERS Safety Report 5635794-0 (Version None)
Quarter: 2008Q1

REPORT INFORMATION
  Report Type: 
  Country: None (occurrence: None)
  Receive Date: 20080221
  Receipt Date: 20080211
  Transmission Date: 20080703
  Serious: Yes (Hospitalization, Other)
  Sender: FDA-Public Use
  Company Number: 144-C5013-07090855

PATIENT
  Age: 79 Year
  Sex: Male

DRUGS (4)
  1. CC-5013 (LENALIDOMIDE) (CAPSULES) [Suspect]
     Indication: 5Q-SYNDROME
     Dosage: 10 MG,DAILY,ORAL;5 MG,DAILY,ORAL
     Route: 048
     Dates: start: 20070525, end: 20070601
  2. CC-5013 (LENALIDOMIDE) (CAPSULES) [Suspect]
     Indication: 5Q-SYNDROME
     Dosage: 10 MG,DAILY,ORAL;5 MG,DAILY,ORAL
     Route: 048
     Dates: start: 20070608, end: 20070818
  3. VERAPAMIL [Concomitant]
  4. TRANDOLAPRIL [Concomitant]

REACTIONS (6)
  - CELLULITIS [None]
  - DISEASE PROGRESSION [None]
  - NEUTROPHIL FUNCTION DISORDER [None]
  - NO THERAPEUTIC RESPONSE [None]
  - SKIN ULCER [None]
  - THROMBOCYTOPENIA [None]
